FAERS Safety Report 7106267-3 (Version None)
Quarter: 2010Q4

REPORT INFORMATION
  Report Type: 
  Country: None (occurrence: None)
  Receive Date: 20101116
  Receipt Date: 20101110
  Transmission Date: 20110411
  Serious: Yes (Other)
  Sender: FDA-Public Use
  Company Number: US-CEPHALON-2010005884

PATIENT
  Age: 53 Year
  Sex: Female

DRUGS (3)
  1. NUVIGIL [Suspect]
     Indication: NARCOLEPSY
     Route: 048
  2. CYMBALTA [Concomitant]
  3. LAMICTAL [Concomitant]

REACTIONS (2)
  - DRUG PRESCRIBING ERROR [None]
  - RASH [None]
